FAERS Safety Report 9494151 (Version 2)
Quarter: 2013Q3

REPORT INFORMATION
  Report Type: Spontaneous
  Country: US (occurrence: US)
  Receive Date: 20130903
  Receipt Date: 20130903
  Transmission Date: 20140515
  Serious: Yes (Other)
  Sender: FDA-Public Use
  Company Number: US-009507513-2012SP016664

PATIENT
  Sex: Female

DRUGS (3)
  1. VICTRELIS [Suspect]
     Indication: HEPATITIS C
     Dosage: 800 MG, TID
     Route: 048
     Dates: start: 20111205, end: 20120228
  2. PEGINTRON [Suspect]
     Dosage: UNK
  3. RIBAPAK [Suspect]
     Indication: HEPATITIS C
     Dosage: 400 MG, BID (STRENGTH REPORTED AS 800 MG COMPLIANCE PAK)
     Dates: start: 20111205, end: 20120228

REACTIONS (2)
  - Haemorrhage [Unknown]
  - Blood count abnormal [Unknown]
